FAERS Safety Report 11138952 (Version 3)
Quarter: 2015Q2

REPORT INFORMATION
  Report Type: Spontaneous
  Country: PT (occurrence: None)
  Receive Date: 20150522
  Receipt Date: 20150604
  Transmission Date: 20150821
  Serious: Yes (Death)
  Sender: FDA-Public Use
  Company Number: PT-H14001-15-00747

PATIENT
  Age: 27 Year
  Sex: Male
  Weight: 77 kg

DRUGS (8)
  1. FENTANYL (FENTANYL) (UNKNOWN) (FENTANYL) [Concomitant]
     Active Substance: FENTANYL
  2. CEFAZOLIN HIKMA (CEFAZOLIN) (1 GRAM, UNKNOWN) (CEFAZOLIN) [Suspect]
     Active Substance: CEFAZOLIN
     Indication: PROPHYLAXIS
     Dosage: NOT OTHERWISE SPECIFIED
     Route: 042
     Dates: start: 20150507, end: 20150507
  3. NITROUS OXIDE (NITROUS OXIDE) (UNKNOWN) (NITROUS OXIDE) [Concomitant]
  4. PROPOFOL (PROPOFOL) (UNKNOWN) (PROPOFOL) [Concomitant]
  5. ROCURONIUM BROMIDE (ROCURONIUM BROMIDE) (UNKNOWN) (ROCURONIUM BROMIDE) [Concomitant]
  6. VALDISPERT (VALERIANA OFFICINALIS EXTRACT) (TABLETS) (VALERIANA OFFICINALIS EXTRACT) [Concomitant]
  7. SEVOFLURANE (SEVOFLURANE) (UNKNOWN) (SEVOFLURANE) [Concomitant]
  8. OXYGEN (OXYGEN) (UNKNOWN) (OXYGEN) [Concomitant]

REACTIONS (1)
  - Anaphylactic shock [None]

NARRATIVE: CASE EVENT DATE: 20150507
